FAERS Safety Report 5312237-8 (Version None)
Quarter: 2007Q2

REPORT INFORMATION
  Report Type: 
  Country: None (occurrence: None)
  Receive Date: 20070430
  Receipt Date: 20060911
  Transmission Date: 20071010
  Serious: No
  Sender: FDA-Public Use
  Company Number: 2006UW17810

PATIENT
  Sex: Female
  Weight: 60.8 kg

DRUGS (4)
  1. NEXIUM [Suspect]
     Indication: GASTROOESOPHAGEAL REFLUX DISEASE
     Dosage: 3 HOURS AFTER DINNER
     Route: 048
     Dates: start: 20060801, end: 20060901
  2. NEXIUM [Suspect]
     Dosage: 1 HOUR BEFORE DINNER
     Route: 048
     Dates: start: 20060901
  3. ZANTAC [Concomitant]
  4. CLARITIN [Concomitant]

REACTIONS (2)
  - GASTROOESOPHAGEAL REFLUX DISEASE [None]
  - PHARYNGOLARYNGEAL PAIN [None]
